FAERS Safety Report 9741905 (Version 1)
Quarter: 2013Q4

REPORT INFORMATION
  Report Type: Spontaneous
  Country: US (occurrence: US)
  Receive Date: 20131210
  Receipt Date: 20131210
  Transmission Date: 20140711
  Serious: No
  Sender: FDA-Public Use
  Company Number: US-009507513-1312USA003519

PATIENT
  Age: 54 Year
  Sex: Female

DRUGS (7)
  1. PEGINTRON [Suspect]
     Indication: HEPATITIS C
     Dosage: 120 MICROGRAM, QW^ REDIPEN
     Route: 058
     Dates: start: 201310
  2. SEROQUEL [Concomitant]
  3. XANAX [Concomitant]
  4. REBETOL [Concomitant]
  5. OXYCODONE [Concomitant]
  6. CYMBALTA [Concomitant]
  7. LEVOTHYROXINE SODIUM [Concomitant]

REACTIONS (3)
  - Drug dose omission [Unknown]
  - Product physical issue [Unknown]
  - Abdominal discomfort [Not Recovered/Not Resolved]
